FAERS Safety Report 25821551 (Version 1)
Quarter: 2025Q3

REPORT INFORMATION
  Report Type: Spontaneous
  Country: US (occurrence: US)
  Receive Date: 20250919
  Receipt Date: 20250919
  Transmission Date: 20251021
  Serious: No
  Sender: BAUSCH AND LOMB
  Company Number: US-BAUSCH-BH-2025-017378

PATIENT
  Age: 68 Year
  Sex: Male
  Weight: 73.94 kg

DRUGS (3)
  1. RELISTOR [Suspect]
     Active Substance: METHYLNALTREXONE BROMIDE
     Indication: Product used for unknown indication
     Route: 048
  2. RELISTOR [Suspect]
     Active Substance: METHYLNALTREXONE BROMIDE
     Route: 048
  3. OXYCODONE [Concomitant]
     Active Substance: OXYCODONE
     Indication: Product used for unknown indication

REACTIONS (9)
  - Retching [Unknown]
  - Nausea [Unknown]
  - Product use complaint [Unknown]
  - Product size issue [Unknown]
  - Treatment noncompliance [Unknown]
  - Concomitant drug effect decreased [Unknown]
  - Intentional underdose [Unknown]
  - Therapy interrupted [Unknown]
  - Therapeutic response unexpected [Unknown]
